FAERS Safety Report 14860545 (Version 1)
Quarter: 2018Q2

REPORT INFORMATION
  Report Type: Spontaneous
  Country: MX (occurrence: MX)
  Receive Date: 20180508
  Receipt Date: 20180508
  Transmission Date: 20180711
  Serious: Yes (Hospitalization, Other)
  Sender: FDA-Public Use
  Company Number: MX-MYLANLABS-2018M1028636

PATIENT
  Age: 21 Year
  Sex: Female

DRUGS (8)
  1. VALPROIC ACID. [Suspect]
     Active Substance: VALPROIC ACID
     Indication: EPILEPSY
     Dosage: TAKING SINCE CHILDHOOD
     Route: 065
  2. RISPERIDONE. [Concomitant]
     Active Substance: RISPERIDONE
     Indication: ABNORMAL BEHAVIOUR
     Dosage: FOR MORE THAN THREE YEARS
     Route: 065
  3. CLOBAZAM [Concomitant]
     Active Substance: CLOBAZAM
     Indication: EPILEPSY
     Route: 065
  4. LORAZEPAM. [Concomitant]
     Active Substance: LORAZEPAM
     Indication: ABNORMAL BEHAVIOUR
     Dosage: INITIAL DAILY DOSE UNKNOWN; LATER DOSE TITRATED TO 6MG/DAY
     Route: 065
  5. LORAZEPAM. [Concomitant]
     Active Substance: LORAZEPAM
     Dosage: DOSE UPTITRATED TO 10MG/DAY
     Route: 065
  6. LORAZEPAM. [Concomitant]
     Active Substance: LORAZEPAM
     Route: 065
  7. FLUOXETINE [Concomitant]
     Active Substance: FLUOXETINE HYDROCHLORIDE
     Indication: ABNORMAL BEHAVIOUR
     Route: 065
  8. PHENYTOIN. [Suspect]
     Active Substance: PHENYTOIN
     Indication: EPILEPSY
     Route: 065

REACTIONS (4)
  - Hypertransaminasaemia [Unknown]
  - Catatonia [Recovered/Resolved]
  - Leukopenia [Unknown]
  - Hyperammonaemic encephalopathy [Recovered/Resolved]
